FAERS Safety Report 5950415-5 (Version None)
Quarter: 2008Q4

REPORT INFORMATION
  Report Type: 
  Country: None (occurrence: None)
  Receive Date: 20081112
  Receipt Date: 20081104
  Transmission Date: 20090506
  Serious: Yes (Hospitalization, Other)
  Sender: FDA-Public Use
  Company Number: US-MERCK-0602USA05217

PATIENT
  Age: 71 Year
  Sex: Female

DRUGS (3)
  1. FOSAMAX [Suspect]
     Indication: OSTEOPOROSIS
     Route: 048
     Dates: start: 19960101, end: 20060106
  2. PREMARIN [Concomitant]
     Indication: HORMONE THERAPY
     Route: 048
     Dates: start: 19690101
  3. DYAZIDE [Concomitant]
     Route: 065
     Dates: start: 20040101

REACTIONS (22)
  - ADVERSE DRUG REACTION [None]
  - ANXIETY [None]
  - ARTHRITIS [None]
  - ATRIAL FIBRILLATION [None]
  - CARPAL TUNNEL SYNDROME [None]
  - CERVICOBRACHIAL SYNDROME [None]
  - CHOLESTEATOMA [None]
  - FALL [None]
  - FUNGAL INFECTION [None]
  - HERPES VIRUS INFECTION [None]
  - JOINT DISLOCATION [None]
  - LACERATION [None]
  - MICROGRAPHIC SKIN SURGERY [None]
  - MIGRAINE [None]
  - MUSCULOSKELETAL CHEST PAIN [None]
  - OPEN WOUND [None]
  - OSTEONECROSIS [None]
  - PHARYNGITIS STREPTOCOCCAL [None]
  - SINUSITIS [None]
  - STOMATITIS [None]
  - TOOTH DISORDER [None]
  - WRIST FRACTURE [None]
